FAERS Safety Report 12857303 (Version 1)
Quarter: 2016Q4

REPORT INFORMATION
  Report Type: Spontaneous
  Country: US (occurrence: US)
  Receive Date: 20161018
  Receipt Date: 20161018
  Transmission Date: 20170207
  Serious: No
  Sender: FDA-Public Use
  Company Number: US-GLAXOSMITHKLINE-US2016148875

PATIENT
  Age: 73 Year
  Sex: Female

DRUGS (2)
  1. NICODERM CQ [Suspect]
     Active Substance: NICOTINE
     Indication: SMOKING CESSATION THERAPY
     Dosage: 14 MG, UNK
     Dates: start: 20161005, end: 20161005
  2. NICODERM CQ [Suspect]
     Active Substance: NICOTINE
     Indication: SMOKING CESSATION THERAPY
     Dosage: 7 MG, UNK

REACTIONS (11)
  - Drug intolerance [Unknown]
  - Adverse event [Unknown]
  - Decreased appetite [Unknown]
  - Drug ineffective [Unknown]
  - Intercepted medication error [Unknown]
  - Off label use [Unknown]
  - Nausea [Recovering/Resolving]
  - Wrong technique in product usage process [Unknown]
  - Malaise [Unknown]
  - Headache [Recovering/Resolving]
  - Nicotine dependence [Unknown]

NARRATIVE: CASE EVENT DATE: 20161005
